FAERS Safety Report 5238795-X (Version None)
Quarter: 2007Q1

REPORT INFORMATION
  Report Type: 
  Country: None (occurrence: None)
  Receive Date: 20070215
  Receipt Date: 20070130
  Transmission Date: 20070707
  Serious: Yes (Other)
  Sender: FDA-Public Use
  Company Number: US-PFIZER INC-2006027564

PATIENT
  Sex: Female

DRUGS (1)
  1. BEXTRA [Suspect]
     Indication: CHEST PAIN
     Dates: start: 20021111, end: 20030301

REACTIONS (2)
  - HYPERSENSITIVITY [None]
  - RASH [None]
